FAERS Safety Report 8604844-1 (Version None)
Quarter: 2012Q3

REPORT INFORMATION
  Report Type: 
  Country: None (occurrence: None)
  Receive Date: 20120820
  Receipt Date: 20120813
  Transmission Date: 20120928
  Serious: No
  Sender: FDA-Public Use
  Company Number: US-B.I. PHARMACEUTICALS,INC./RIDGEFIELD-2012-BP-11175BP

PATIENT
  Age: 83 Year
  Sex: Female

DRUGS (5)
  1. CARDIZEM [Concomitant]
     Indication: HYPERTENSION
  2. FOSAMAX NASAL SPRAY [Concomitant]
     Indication: OSTEOPOROSIS
     Route: 045
  3. SPIRIVA [Suspect]
     Indication: LUNG DISORDER
     Route: 048
     Dates: start: 20120518, end: 20120518
  4. SPIRIVA [Suspect]
     Indication: ASTHMA
     Dosage: 18 MCG
     Route: 055
     Dates: start: 20120401, end: 20120701
  5. CARDIZEM [Concomitant]
     Indication: HEART RATE INCREASED
     Route: 048

REACTIONS (2)
  - ALOPECIA [None]
  - INCORRECT ROUTE OF DRUG ADMINISTRATION [None]
